FAERS Safety Report 4596790-8 (Version None)
Quarter: 2005Q1

REPORT INFORMATION
  Report Type: 
  Country: None (occurrence: None)
  Receive Date: 20050228
  Receipt Date: 20040709
  Transmission Date: 20050727
  Serious: Yes (Hospitalization)
  Sender: FDA-Public Use
  Company Number: 8451

PATIENT
  Age: 62 Year
  Sex: Female

DRUGS (4)
  1. METHOTREXATE [Suspect]
     Dosage: 7.5 MG FREQ UNK
     Route: 065
     Dates: start: 20031101
  2. CCI-779 [Suspect]
     Indication: RHEUMATOID ARTHRITIS
     Dosage: 4 MG PO
     Route: 048
     Dates: start: 20040330, end: 20040413
  3. METHYLPREDNISOLONE [Concomitant]
  4. INDOMETHACIN [Concomitant]

REACTIONS (3)
  - APHTHOUS STOMATITIS [None]
  - BRONCHOPNEUMONIA [None]
  - CYANOSIS [None]
